FAERS Safety Report 5502215-8 (Version None)
Quarter: 2007Q4

REPORT INFORMATION
  Report Type: 
  Country: None (occurrence: None)
  Receive Date: 20071030
  Receipt Date: 20071024
  Transmission Date: 20080405
  Serious: Yes (Death)
  Sender: FDA-Public Use
  Company Number: CL-ABBOTT-07P-034-0421296-00

PATIENT
  Sex: Male
  Weight: 67 kg

DRUGS (3)
  1. KALETRA [Suspect]
     Indication: HIV INFECTION
     Dates: start: 20060821, end: 20071003
  2. ZIDOVUDINE [Concomitant]
     Indication: HIV INFECTION
     Route: 048
     Dates: start: 20060821, end: 20071003
  3. LAMIVUDINE [Concomitant]
     Indication: HIV INFECTION
     Route: 048
     Dates: start: 20060821, end: 20071003

REACTIONS (7)
  - ABDOMINAL PAIN [None]
  - LYMPHADENOPATHY [None]
  - NAUSEA [None]
  - NEOPLASM [None]
  - PALLOR [None]
  - PYREXIA [None]
  - VOMITING [None]
